FAERS Safety Report 4463908-7 (Version None)
Quarter: 2004Q3

REPORT INFORMATION
  Report Type: 
  Country: None (occurrence: None)
  Receive Date: 20040929
  Receipt Date: 20040922
  Transmission Date: 20050211
  Serious: Yes (Hospitalization, Other)
  Sender: FDA-Public Use
  Company Number: IT-JNJFOC-20040907520

PATIENT
  Age: 83 Year
  Sex: Female

DRUGS (7)
  1. ACETAMINOPHEN [Suspect]
     Indication: INFLUENZA LIKE ILLNESS
     Dosage: 600 MG, 1 IN 1 DAY, ORAL
     Route: 048
  2. METFORMIN HCL [Concomitant]
  3. GLIMEPIRIDE [Concomitant]
  4. ASPIRIN [Concomitant]
  5. NITROGLYCERIN [Concomitant]
  6. NIFEDIPINE [Concomitant]
  7. CHLORPHEIRAMINE [Suspect]
     Indication: INFLUENZA LIKE ILLNESS
     Dosage: 4 MG, 1IN 1 DAY,ORAL
     Route: 048

REACTIONS (14)
  - ACTIVATED PARTIAL THROMBOPLASTIN TIME PROLONGED [None]
  - ANAEMIA [None]
  - EMOTIONAL DISTRESS [None]
  - FACTOR VIII INHIBITION [None]
  - FACTOR XI DEFICIENCY [None]
  - HAEMORRHAGIC ASCITES [None]
  - HAEMORRHAGIC DISORDER [None]
  - HAEMOTHORAX [None]
  - INTERNATIONAL NORMALISED RATIO DECREASED [None]
  - LIVER PALPABLE SUBCOSTAL [None]
  - MUSCLE HAEMORRHAGE [None]
  - OEDEMA PERIPHERAL [None]
  - SUBCUTANEOUS HAEMATOMA [None]
  - SUDDEN DEATH [None]
